FAERS Safety Report 18282304 (Version 4)
Quarter: 2020Q4

REPORT INFORMATION
  Report Type: Spontaneous
  Country: CA (occurrence: CA)
  Receive Date: 20200918
  Receipt Date: 20201022
  Transmission Date: 20210113
  Serious: Yes (Hospitalization)
  Sender: FDA-Public Use
  Company Number: CA-CELLTRION INC.-2020CA022871

PATIENT

DRUGS (4)
  1. INFLECTRA [Suspect]
     Active Substance: INFLIXIMAB-DYYB
     Dosage: 500 MG, EVERY 4 WEEKS
     Route: 042
  2. INFLECTRA [Suspect]
     Active Substance: INFLIXIMAB-DYYB
     Dosage: 500 MG, EVERY 4 WEEKS
     Route: 042
  3. INFLECTRA [Suspect]
     Active Substance: INFLIXIMAB-DYYB
     Indication: CROHN^S DISEASE
     Dosage: 500 MG, EVERY 4 WEEKS
     Route: 042
     Dates: start: 20200810
  4. INFLECTRA [Suspect]
     Active Substance: INFLIXIMAB-DYYB
     Dosage: 500 MG, EVERY 4 WEEKS
     Route: 042
     Dates: end: 20200810

REACTIONS (14)
  - Hyperhidrosis [Unknown]
  - Intentional product use issue [Unknown]
  - Malaise [Unknown]
  - Vomiting [Not Recovered/Not Resolved]
  - Abdominal pain [Unknown]
  - Pyrexia [Unknown]
  - Nausea [Unknown]
  - Crohn^s disease [Recovered/Resolved]
  - Off label use [Unknown]
  - Blood pressure diastolic decreased [Unknown]
  - Drug ineffective [Not Recovered/Not Resolved]
  - Diarrhoea [Unknown]
  - Dyspnoea [Unknown]
  - Heart rate decreased [Unknown]

NARRATIVE: CASE EVENT DATE: 20200810
